FAERS Safety Report 22127282 (Version 1)
Quarter: 2023Q1

REPORT INFORMATION
  Report Type: Spontaneous
  Country: US (occurrence: US)
  Receive Date: 20230322
  Receipt Date: 20230322
  Transmission Date: 20230417
  Serious: Yes (Other)
  Sender: FDA-Public Use
  Company Number: US-ALLERGAN-2222105US

PATIENT
  Sex: Female

DRUGS (1)
  1. KYBELLA [Suspect]
     Active Substance: DEOXYCHOLIC ACID
     Indication: Fat tissue increased
     Dosage: UNK, SINGLE

REACTIONS (5)
  - Injection site necrosis [Unknown]
  - Injection site pallor [Unknown]
  - Injection site discolouration [Unknown]
  - Vascular injury [Unknown]
  - Injection site pain [Unknown]
